FAERS Safety Report 15725699 (Version 1)
Quarter: 2018Q4

REPORT INFORMATION
  Report Type: Spontaneous
  Country: US (occurrence: US)
  Receive Date: 20181215
  Receipt Date: 20181215
  Transmission Date: 20190205
  Serious: No
  Sender: FDA-Public Use
  Company Number: US-PRINSTON PHARMACEUTICAL INC.-2018PRN01470

PATIENT
  Sex: Male
  Weight: 68.03 kg

DRUGS (3)
  1. CIALIS [Concomitant]
     Active Substance: TADALAFIL
  2. DULOXETINE. [Suspect]
     Active Substance: DULOXETINE
     Indication: NEUROPATHY PERIPHERAL
     Dosage: 30 MG, 1X/DAY
     Route: 048
     Dates: start: 20180914, end: 20180918
  3. LOSARTAN. [Concomitant]
     Active Substance: LOSARTAN

REACTIONS (3)
  - Nasal congestion [Not Recovered/Not Resolved]
  - Micturition urgency [Not Recovered/Not Resolved]
  - Nocturia [Not Recovered/Not Resolved]
